FAERS Safety Report 8494388-2 (Version None)
Quarter: 2012Q2

REPORT INFORMATION
  Report Type: 
  Country: None (occurrence: None)
  Receive Date: 20120405
  Receipt Date: 20081212
  Transmission Date: 20120825
  Serious: Yes (Hospitalization)
  Sender: FDA-Public Use
  Company Number: PHEH2008US11066

PATIENT

DRUGS (1)
  1. RECLAST [Suspect]
     Indication: OSTEOPOROSIS
     Dosage: 5 MG IV ONCE, INTRAVENOUS
     Route: 042
     Dates: start: 20081126

REACTIONS (2)
  - CHEST PAIN [None]
  - ARTHRALGIA [None]
